FAERS Safety Report 24065418 (Version 1)
Quarter: 2024Q3

REPORT INFORMATION
  Report Type: Spontaneous
  Country: US (occurrence: US)
  Receive Date: 20240709
  Receipt Date: 20240709
  Transmission Date: 20241016
  Serious: Yes (Hospitalization)
  Sender: BIOGEN
  Company Number: US-BIOGEN-2023BI01226950

PATIENT
  Age: 66 Year
  Sex: Male
  Weight: 79.1 kg

DRUGS (10)
  1. TYSABRI [Suspect]
     Active Substance: NATALIZUMAB
     Indication: Multiple sclerosis
     Route: 050
     Dates: start: 202401
  2. TYSABRI [Suspect]
     Active Substance: NATALIZUMAB
     Route: 050
     Dates: start: 20140701, end: 20230712
  3. TYSABRI [Suspect]
     Active Substance: NATALIZUMAB
     Route: 050
     Dates: start: 20140107, end: 20231007
  4. AMPYRA [Suspect]
     Active Substance: DALFAMPRIDINE
     Indication: Product used for unknown indication
     Route: 050
  5. ASPIRIN [Concomitant]
     Active Substance: ASPIRIN
     Indication: Product used for unknown indication
     Route: 050
     Dates: start: 20230811, end: 20230910
  6. LIPITOR [Concomitant]
     Active Substance: ATORVASTATIN CALCIUM
     Indication: Product used for unknown indication
     Route: 050
     Dates: start: 20230223, end: 20240223
  7. TEGRETOL [Concomitant]
     Active Substance: CARBAMAZEPINE
     Indication: Trigeminal neuralgia
     Dosage: NIGHTLY
     Route: 050
     Dates: start: 20221128, end: 20231116
  8. VASOTEC [Concomitant]
     Active Substance: ENALAPRIL MALEATE
     Indication: Product used for unknown indication
     Route: 050
  9. TOPROL XL [Concomitant]
     Active Substance: METOPROLOL SUCCINATE
     Indication: Product used for unknown indication
     Route: 050
  10. FLOMAX [Concomitant]
     Active Substance: TAMSULOSIN HYDROCHLORIDE
     Indication: Product used for unknown indication
     Dosage: AFTER DINNER
     Route: 050

REACTIONS (2)
  - COVID-19 [Recovered/Resolved]
  - Urinary tract infection [Unknown]

NARRATIVE: CASE EVENT DATE: 20230802
